FAERS Safety Report 4677684-6 (Version None)
Quarter: 2005Q2

REPORT INFORMATION
  Report Type: 
  Country: None (occurrence: None)
  Receive Date: 20050531
  Receipt Date: 20050520
  Transmission Date: 20051028
  Serious: Yes (Hospitalization, Disabling)
  Sender: FDA-Public Use
  Company Number: US-MERCK-0505USA02439

PATIENT
  Age: 35 Year
  Sex: Male

DRUGS (25)
  1. VIOXX [Suspect]
     Route: 048
     Dates: end: 20030101
  2. SIMETHICONE [Suspect]
     Indication: FLATULENCE
     Route: 048
     Dates: start: 20000101
  3. LITHIUM SULFATE [Suspect]
     Indication: BIPOLAR DISORDER
     Route: 048
  4. IBUPROFEN [Suspect]
     Indication: PAIN
     Route: 048
  5. VITAMINS (UNSPECIFIED) [Concomitant]
     Route: 065
  6. ASCORBIC ACID [Concomitant]
     Route: 065
  7. ACIDOPHILUS [Concomitant]
     Route: 065
  8. GARLIC EXTRACT [Concomitant]
     Route: 065
  9. VITAMIN E [Concomitant]
     Route: 065
  10. GABAPENTIN [Concomitant]
     Route: 065
  11. CELEBREX [Concomitant]
     Route: 065
  12. OMEPRAZOLE [Concomitant]
     Route: 065
  13. SINGULAIR [Concomitant]
     Route: 065
  14. LORATADINE [Concomitant]
     Route: 065
  15. SUMATRIPTAN SUCCINATE [Concomitant]
     Route: 065
  16. BUSPIRONE HYDROCHLORIDE [Concomitant]
     Route: 065
  17. [THERAPY UNSPECIFIED] [Concomitant]
     Route: 065
  18. DOCUSATE SODIUM [Concomitant]
     Route: 065
  19. VENLAFAXINE HYDROCHLORIDE [Concomitant]
     Route: 065
  20. BUDESONIDE [Concomitant]
     Route: 065
  21. ALBUTEROL SULFATE [Concomitant]
     Route: 065
  22. SALMETEROL XINAFOATE [Concomitant]
     Route: 065
  23. BEXTRA [Suspect]
     Indication: ARTHRITIS
     Route: 048
     Dates: start: 20030101
  24. IPRATROPIUM BROMIDE [Concomitant]
     Route: 065
  25. ASPIRIN [Concomitant]
     Route: 065

REACTIONS (13)
  - ACTIVITIES OF DAILY LIVING IMPAIRED [None]
  - AMNESIA [None]
  - ARTHRITIS [None]
  - CEREBROVASCULAR ACCIDENT [None]
  - COMA [None]
  - DIALYSIS [None]
  - DIFFICULTY IN WALKING [None]
  - HALLUCINATION [None]
  - HEMIPLEGIA [None]
  - INFLUENZA [None]
  - MALAISE [None]
  - RENAL FAILURE [None]
  - SPEECH DISORDER [None]
